FAERS Safety Report 12978410 (Version 1)
Quarter: 2016Q4

REPORT INFORMATION
  Report Type: Spontaneous
  Country: US (occurrence: US)
  Receive Date: 20161127
  Receipt Date: 20161127
  Transmission Date: 20170207
  Serious: Yes (Hospitalization, Disabling)
  Sender: FDA-Public Use
  Company Number: None

PATIENT
  Age: 21 Year
  Sex: Male
  Weight: 67.5 kg

DRUGS (4)
  1. FLUOXETINE [Suspect]
     Active Substance: FLUOXETINE HYDROCHLORIDE
     Indication: DEPRESSION
     Dosage: QUANTITY:100 CAPSULE(S); DAILY; ORAL?
     Route: 048
     Dates: start: 20160902, end: 20161004
  2. KRILL OIL [Concomitant]
     Active Substance: DIETARY SUPPLEMENT
  3. FLUOXETINE [Suspect]
     Active Substance: FLUOXETINE HYDROCHLORIDE
     Indication: ANXIETY
     Dosage: QUANTITY:100 CAPSULE(S); DAILY; ORAL?
     Route: 048
     Dates: start: 20160902, end: 20161004
  4. MULTI VITAMINS [Concomitant]
     Active Substance: VITAMINS

REACTIONS (8)
  - Sleep terror [None]
  - Mania [None]
  - Insomnia [None]
  - Drug withdrawal syndrome [None]
  - Cold sweat [None]
  - Agitation [None]
  - Depression [None]
  - Suicidal ideation [None]

NARRATIVE: CASE EVENT DATE: 20160913
